FAERS Safety Report 13515810 (Version 5)
Quarter: 2021Q4

REPORT INFORMATION
  Report Type: Spontaneous
  Country: SI (occurrence: SI)
  Receive Date: 20170504
  Receipt Date: 20211123
  Transmission Date: 20220304
  Serious: Yes (Hospitalization, Other)
  Sender: FDA-Public Use
  Company Number: None

PATIENT
  Age: 51 Year
  Sex: Male
  Weight: 80 kg

DRUGS (10)
  1. KEYTRUDA [Suspect]
     Active Substance: PEMBROLIZUMAB
     Indication: Non-small cell lung cancer metastatic
     Dosage: 200MG/21 DAYS
     Route: 041
     Dates: start: 20170224, end: 20171212
  2. OXYCONTIN [Concomitant]
     Active Substance: OXYCODONE HYDROCHLORIDE
     Indication: Analgesic therapy
     Dosage: 2X10MG/DAY
     Route: 048
  3. NALGESIN [NAPROXEN SODIUM] [Concomitant]
     Indication: Analgesic therapy
     Dosage: 2X550MG/DAY
     Route: 048
  4. MORPHINE [Concomitant]
     Active Substance: MORPHINE
     Indication: Analgesic therapy
     Dosage: MAX 6X10MG/DAY
     Route: 048
  5. LYRICA [Concomitant]
     Active Substance: PREGABALIN
     Indication: Neuralgia
     Dosage: UNK
  6. PANTOPRAZOLE SODIUM [Concomitant]
     Active Substance: PANTOPRAZOLE SODIUM
     Dosage: 1 DF, QD (40MGLDAY)
     Route: 048
  7. ASPIRIN [Concomitant]
     Active Substance: ASPIRIN
     Dosage: 1 DF, QD (100MG/DAY)
     Route: 048
  8. FENOTEROL HYDROBROMIDE\IPRATROPIUM BROMIDE [Concomitant]
     Active Substance: FENOTEROL HYDROBROMIDE\IPRATROPIUM BROMIDE
     Dosage: UNK UNK, PRN
     Route: 055
  9. FOSTER [Concomitant]
     Active Substance: BECLOMETHASONE\FORMOTEROL
     Dosage: 2X2 INH/DAY
     Route: 055
  10. BEKUNIS [SENNA ALEXANDRINA] [Concomitant]
     Dosage: UNK UNK, PRN
     Route: 048

REACTIONS (2)
  - Diabetes mellitus [Recovered/Resolved with Sequelae]
  - Skin toxicity [Unknown]

NARRATIVE: CASE EVENT DATE: 20170402
